FAERS Safety Report 15772988 (Version 1)
Quarter: 2018Q4

REPORT INFORMATION
  Report Type: Spontaneous
  Country: GB (occurrence: DK)
  Receive Date: 20181228
  Receipt Date: 20181228
  Transmission Date: 20190205
  Serious: Yes (Life-Threatening, Hospitalization)
  Sender: FDA-Public Use
  Company Number: DK-FRESENIUS KABI-FK201812982

PATIENT
  Age: 47 Year
  Sex: Female

DRUGS (12)
  1. CARBOPLATIN (MANUFACTURER UNKNOWN) [Suspect]
     Active Substance: CARBOPLATIN
     Indication: SMALL CELL LUNG CANCER
     Route: 042
     Dates: start: 20181029
  2. LITHIUM CITRATE. [Concomitant]
     Active Substance: LITHIUM CITRATE
     Indication: DEPRESSION
     Dosage: STRENGTH: 6 MMOL LI+.
     Route: 048
     Dates: start: 20130819
  3. PANTOPRAZOLE [Concomitant]
     Active Substance: PANTOPRAZOLE
     Indication: GASTRIC ULCER
     Dosage: STRENGTH: 40 MG.
     Route: 048
     Dates: start: 20171205
  4. MELATONIN [Concomitant]
     Active Substance: MELATONIN
     Indication: INSOMNIA
     Dosage: STRENGTH: 2 MG: DOSE: 2-3 TABLETS AS NEEDED.
     Route: 048
     Dates: start: 20171205
  5. ZOPICLONE [Concomitant]
     Active Substance: ZOPICLONE
     Indication: INSOMNIA
     Dosage: STRENGTH: 3,75 MG.
     Route: 048
     Dates: start: 20140828
  6. OXAZEPAM. [Concomitant]
     Active Substance: OXAZEPAM
     Indication: SEDATIVE THERAPY
     Dosage: STRENGTH: 15 MG. DOSE: 0,5 TABLET AS NEEDED. MAXIMUM 3 TIMES A DAY
     Route: 048
  7. NORTRIPTYLINE HYDROCHLORIDE. [Concomitant]
     Active Substance: NORTRIPTYLINE HYDROCHLORIDE
     Indication: DEPRESSION
     Dosage: STRENGTH: 50 MG + 25 MG.
     Route: 048
     Dates: start: 20131018
  8. CHLORPROTHIXENE [Concomitant]
     Active Substance: CHLORPROTHIXENE
     Indication: SEDATIVE THERAPY
     Dosage: STRENGTH: 25 MG.
     Route: 048
     Dates: start: 20131017
  9. METOCLOPRAMIDE. [Concomitant]
     Active Substance: METOCLOPRAMIDE
     Indication: ADVERSE DRUG REACTION
     Dosage: STRENGTH: 10 MG. DOSE: 3 TABLETS AS NEEDED, MAXIMUM 4 TIMES A DAY.
     Route: 048
     Dates: start: 20180803
  10. PREDNISOLONE. [Concomitant]
     Active Substance: PREDNISOLONE
     Indication: ADRENOCORTICAL STEROID THERAPY
     Dosage: STRENGTH: 50 MG.
     Route: 048
     Dates: start: 20171223
  11. ETOPOSIDE (MANUFACTURER UNKNOWN) [Suspect]
     Active Substance: ETOPOSIDE
     Indication: SMALL CELL LUNG CANCER
     Route: 042
     Dates: start: 20181029
  12. NO DRUG NAME [Concomitant]
     Indication: ASTHMA
     Dosage: STRENGTH: 0,1 MG/DOSIS
     Route: 055
     Dates: start: 20150205

REACTIONS (2)
  - Acute myocardial infarction [Recovering/Resolving]
  - Stenosis [Recovering/Resolving]

NARRATIVE: CASE EVENT DATE: 201811
